FAERS Safety Report 4699475-2 (Version None)
Quarter: 2005Q2

REPORT INFORMATION
  Report Type: 
  Country: None (occurrence: None)
  Receive Date: 20050622
  Receipt Date: 20050613
  Transmission Date: 20051028
  Serious: Yes (Death, Hospitalization)
  Sender: FDA-Public Use
  Company Number: 2005EU001233

PATIENT
  Age: 51 Year
  Sex: Female

DRUGS (2)
  1. PROGRAF [Suspect]
     Indication: LIVER TRANSPLANT
     Dosage: D
  2. CORTICOSTEROIDS [Concomitant]

REACTIONS (3)
  - KAPOSI'S SARCOMA [None]
  - LIVER TRANSPLANT REJECTION [None]
  - TREATMENT NONCOMPLIANCE [None]
